FAERS Safety Report 9921405 (Version 1)
Quarter: 2014Q1

REPORT INFORMATION
  Report Type: Spontaneous
  Country: US (occurrence: None)
  Receive Date: 20140221
  Receipt Date: 20140221
  Transmission Date: 20141002
  Serious: Yes (Hospitalization)
  Sender: FDA-Public Use
  Company Number: None

PATIENT
  Age: 58 Year
  Sex: Female

DRUGS (13)
  1. AFINITOR [Suspect]
     Indication: PANCREATIC CARCINOMA
     Route: 048
     Dates: start: 20130523
  2. CEPHALEXIN [Concomitant]
  3. DRAMAMINE [Concomitant]
  4. AFINITOR [Concomitant]
  5. AMBIEN [Concomitant]
  6. LORAZEPAM [Concomitant]
  7. THIAMINE HCL [Concomitant]
  8. ALPRAZOLAM [Concomitant]
  9. GREEN TEA [Concomitant]
  10. OXYCODONE [Concomitant]
  11. MULTI-DAY TAB VITAMINS [Concomitant]
  12. FOLIC ACID [Concomitant]
  13. CYCLOBENZAPRINE [Concomitant]

REACTIONS (3)
  - Cardiac infection [None]
  - Viral infection [None]
  - Heart injury [None]
